FAERS Safety Report 18126910 (Version 2)
Quarter: 2020Q3

REPORT INFORMATION
  Report Type: Spontaneous
  Country: US (occurrence: US)
  Receive Date: 20200810
  Receipt Date: 20200927
  Transmission Date: 20201103
  Serious: No
  Sender: FDA-Public Use
  Company Number: US-ASTRAZENECA-2020SE97459

PATIENT
  Sex: Male

DRUGS (13)
  1. VITAMIN B12 [Concomitant]
     Active Substance: CYANOCOBALAMIN
  2. SENNA [Concomitant]
     Active Substance: SENNA LEAF\SENNOSIDES\SENNOSIDES A AND B
  3. TRADJENTA [Concomitant]
     Active Substance: LINAGLIPTIN
  4. BYDUREON BCISE [Suspect]
     Active Substance: EXENATIDE
     Indication: TYPE 2 DIABETES MELLITUS
     Route: 058
     Dates: start: 2019
  5. FERROUS SULFATE. [Concomitant]
     Active Substance: FERROUS SULFATE
  6. LINZESS [Concomitant]
     Active Substance: LINACLOTIDE
  7. LOSARTAN POTASSIUM. [Concomitant]
     Active Substance: LOSARTAN POTASSIUM
  8. REPAGLINIDE. [Concomitant]
     Active Substance: REPAGLINIDE
  9. SPIRONOLACTONE. [Concomitant]
     Active Substance: SPIRONOLACTONE
  10. FOLIC ACID. [Concomitant]
     Active Substance: FOLIC ACID
  11. MYRBETRQ [Concomitant]
  12. AMLODIPINE [Concomitant]
     Active Substance: AMLODIPINE BESYLATE
     Dosage: 10 UNIT
  13. VITAMIN D2 [Concomitant]
     Active Substance: ERGOCALCIFEROL

REACTIONS (4)
  - Injection site haemorrhage [Unknown]
  - Device issue [Unknown]
  - Drug dose omission by device [Unknown]
  - Intentional device misuse [Not Recovered/Not Resolved]
